FAERS Safety Report 7300996-4 (Version None)
Quarter: 2010Q4

REPORT INFORMATION
  Report Type: 
  Country: None (occurrence: None)
  Receive Date: 20101230
  Receipt Date: 20100506
  Transmission Date: 20110411
  Serious: Yes (Other)
  Sender: FDA-Public Use
  Company Number: 20100203

PATIENT
  Sex: Female
  Weight: 43.5453 kg

DRUGS (1)
  1. VENOFER [Suspect]
     Indication: IRON DEFICIENCY ANAEMIA
     Dosage: 500 MG INTRAVENOUS
     Route: 042
     Dates: start: 20100430, end: 20100430

REACTIONS (10)
  - ARTHRALGIA [None]
  - BACK PAIN [None]
  - BURNING SENSATION [None]
  - DIZZINESS [None]
  - DRY MOUTH [None]
  - HEADACHE [None]
  - INJECTION SITE PAIN [None]
  - MYALGIA [None]
  - NAUSEA [None]
  - OEDEMA [None]
